FAERS Safety Report 24707996 (Version 1)
Quarter: 2024Q4

REPORT INFORMATION
  Report Type: Other
  Country: IT (occurrence: IT)
  Receive Date: 20241206
  Receipt Date: 20241206
  Transmission Date: 20250115
  Serious: Yes (Hospitalization)
  Sender: B BRAUN
  Company Number: IT-B.Braun Medical Inc.-2166626

PATIENT
  Age: 51 Year
  Sex: Female

DRUGS (1)
  1. METRONIDAZOLE [Suspect]
     Active Substance: METRONIDAZOLE
     Indication: Colitis ulcerative

REACTIONS (2)
  - Linear IgA disease [Recovered/Resolved with Sequelae]
  - Off label use [Recovered/Resolved with Sequelae]
